FAERS Safety Report 5208447-0 (Version None)
Quarter: 2006Q4

REPORT INFORMATION
  Report Type: 
  Country: None (occurrence: None)
  Receive Date: 20061027
  Receipt Date: 20060228
  Transmission Date: 20070319
  Serious: Yes (Other)
  Sender: FDA-Public Use
  Company Number: HQWYE936016AUG05

PATIENT
  Age: 51 Year
  Sex: Female
  Weight: 79.45 kg

DRUGS (4)
  1. PREMARIN [Suspect]
  2. CYCRIN [Suspect]
  3. MEDROXYPROGESTERONE [Suspect]
  4. PROVERA [Suspect]

REACTIONS (1)
  - OVARIAN CANCER METASTATIC [None]
